FAERS Safety Report 17524813 (Version 1)
Quarter: 2020Q1

REPORT INFORMATION
  Report Type: Spontaneous
  Country: US (occurrence: US)
  Receive Date: 20200303
  Receipt Date: 20200303
  Transmission Date: 20200409
  Serious: Yes (Hospitalization)
  Sender: FDA-Public Use
  Company Number: None

PATIENT
  Sex: Female
  Weight: 67.5 kg

DRUGS (2)
  1. EVEROLIMUS. [Suspect]
     Active Substance: EVEROLIMUS
  2. DEXAMETHASONE. [Concomitant]
     Active Substance: DEXAMETHASONE

REACTIONS (9)
  - Hyponatraemia [None]
  - Malignant ascites [None]
  - Blood creatinine increased [None]
  - Hyperkalaemia [None]
  - Pyrexia [None]
  - Oedema peripheral [None]
  - Anaemia [None]
  - Fatigue [None]
  - Cough [None]

NARRATIVE: CASE EVENT DATE: 20200224
